FAERS Safety Report 6479321-7 (Version None)
Quarter: 2009Q4

REPORT INFORMATION
  Report Type: 
  Country: None (occurrence: None)
  Receive Date: 20091207
  Receipt Date: 20090222
  Transmission Date: 20100525
  Serious: No
  Sender: FDA-Public Use
  Company Number: US-AMGEN-KDL335123

PATIENT
  Sex: Female

DRUGS (2)
  1. ENBREL [Suspect]
     Indication: INTERSTITIAL LUNG DISEASE
     Route: 058
     Dates: start: 20031101
  2. PLAQUENIL [Concomitant]
     Route: 048

REACTIONS (1)
  - NASOPHARYNGITIS [None]
